FAERS Safety Report 19702971 (Version 2)
Quarter: 2021Q3

REPORT INFORMATION
  Report Type: Spontaneous
  Country: PL (occurrence: PL)
  Receive Date: 20210816
  Receipt Date: 20210823
  Transmission Date: 20211014
  Serious: Yes (Other)
  Sender: FDA-Public Use
  Company Number: PL-AMGEN-POLSP2021123744

PATIENT
  Age: 57 Year
  Sex: Female

DRUGS (5)
  1. LEVOFOLIC [Suspect]
     Active Substance: LEUCOVORIN
     Indication: COLORECTAL CANCER METASTATIC
     Dosage: 100 MILLIGRAM/SQ. METER (2?HOUR INFUSION ON DAY 1?2)
     Route: 042
     Dates: start: 20210407
  2. VECTIBIX [Suspect]
     Active Substance: PANITUMUMAB
     Indication: COLORECTAL CANCER METASTATIC
     Dosage: 6 MILLIGRAM/KILOGRAM (1?HOUR INFUSION ON DAY 1)
     Route: 042
     Dates: start: 20210407
  3. OXALIPLATIN. [Suspect]
     Active Substance: OXALIPLATIN
     Indication: COLORECTAL CANCER METASTATIC
     Dosage: 85 MILLIGRAM/SQ. METER (ON DAY 1)
     Route: 042
     Dates: start: 20210407
  4. 5?FU [FLUOROURACIL] [Suspect]
     Active Substance: FLUOROURACIL
     Indication: COLORECTAL CANCER METASTATIC
     Dosage: 400 MILLIGRAM/SQ. METER (BOLUS ON DAY 1?2)
     Route: 042
     Dates: start: 20210407
  5. 5?FU [FLUOROURACIL] [Suspect]
     Active Substance: FLUOROURACIL
     Dosage: 600 MILLIGRAM/SQ. METER (22?HOUR INFUSION ON DAY 1?2)
     Route: 042
     Dates: start: 20210407

REACTIONS (6)
  - Hypomagnesaemia [Unknown]
  - Dermatitis acneiform [Unknown]
  - Asthenia [Unknown]
  - Stomatitis [Unknown]
  - Thrombocytopenia [Unknown]
  - Polyneuropathy [Unknown]

NARRATIVE: CASE EVENT DATE: 2021
